FAERS Safety Report 25540289 (Version 6)
Quarter: 2025Q4

REPORT INFORMATION
  Report Type: Spontaneous
  Country: US (occurrence: US)
  Receive Date: 20250710
  Receipt Date: 20251208
  Transmission Date: 20260118
  Serious: No
  Sender: SANOFI AVENTIS
  Company Number: US-SA-2025SA193591

PATIENT
  Age: 62 Year
  Sex: Female

DRUGS (1)
  1. DUPIXENT [Suspect]
     Active Substance: DUPILUMAB
     Indication: Eosinophilic oesophagitis
     Dosage: 300 MG, QOW
     Route: 058
     Dates: start: 20250514

REACTIONS (13)
  - Dysphagia [Recovered/Resolved]
  - Rash erythematous [Unknown]
  - Rash papular [Unknown]
  - Joint swelling [Unknown]
  - Joint range of motion decreased [Recovering/Resolving]
  - Joint lock [Unknown]
  - Pruritus [Unknown]
  - Injection site pain [Recovered/Resolved]
  - Rash [Unknown]
  - Arthralgia [Unknown]
  - Eosinophilic oesophagitis [Unknown]
  - Intentional product misuse [Unknown]
  - Product dose omission in error [Unknown]

NARRATIVE: CASE EVENT DATE: 20250101
